FAERS Safety Report 12980409 (Version 3)
Quarter: 2017Q2

REPORT INFORMATION
  Report Type: Spontaneous
  Country: GB (occurrence: GB)
  Receive Date: 20161128
  Receipt Date: 20170421
  Transmission Date: 20170830
  Serious: Yes (Hospitalization)
  Sender: FDA-Public Use
  Company Number: GB-ELI_LILLY_AND_COMPANY-GB201611006966

PATIENT
  Age: 68 Year
  Sex: Female

DRUGS (1)
  1. FORSTEO [Suspect]
     Active Substance: TERIPARATIDE
     Indication: SPINAL DISORDER
     Dosage: UNK, QD
     Route: 065
     Dates: start: 201511, end: 20161110

REACTIONS (4)
  - Off label use [Recovered/Resolved]
  - Fluid retention [Unknown]
  - Kidney infection [Not Recovered/Not Resolved]
  - Renal haemorrhage [Unknown]

NARRATIVE: CASE EVENT DATE: 201511
